FAERS Safety Report 12413731 (Version 1)
Quarter: 2016Q2

REPORT INFORMATION
  Report Type: Spontaneous
  Country: US (occurrence: US)
  Receive Date: 20160527
  Receipt Date: 20160527
  Transmission Date: 20160815
  Serious: No
  Sender: FDA-Public Use
  Company Number: US-SUPERNUS PHARMACEUTICALS, INC.-2016SUP00023

PATIENT
  Age: 58 Year
  Sex: Male
  Weight: 100.68 kg

DRUGS (3)
  1. TEGRETOL [Concomitant]
     Active Substance: CARBAMAZEPINE
     Dosage: 1 DOSAGE UNITS, 1X/DAY
     Dates: start: 20160213
  2. TROKENDI XR [Suspect]
     Active Substance: TOPIRAMATE
     Indication: SEIZURE
     Dosage: 200 MG, 1X/DAY
     Route: 048
     Dates: start: 20160213
  3. UNSPECIFIED VITAMIN(S) [Concomitant]

REACTIONS (5)
  - Insomnia [Unknown]
  - Hypoaesthesia [Recovering/Resolving]
  - Feeling cold [Recovering/Resolving]
  - Heart rate increased [Recovering/Resolving]
  - Tremor [Recovering/Resolving]

NARRATIVE: CASE EVENT DATE: 20160213
